FAERS Safety Report 21635258 (Version 2)
Quarter: 2023Q2

REPORT INFORMATION
  Report Type: Report from Study
  Country: US (occurrence: US)
  Receive Date: 20221123
  Receipt Date: 20230417
  Transmission Date: 20230722
  Serious: No
  Sender: FDA-Public Use
  Company Number: US-ABBVIE-22K-163-4471605-00

PATIENT
  Age: 62 Year
  Sex: Female

DRUGS (3)
  1. HUMIRA [Suspect]
     Active Substance: ADALIMUMAB
     Indication: Psoriatic arthropathy
     Dosage: CITRATE FREE
     Route: 058
  2. HUMIRA [Suspect]
     Active Substance: ADALIMUMAB
     Dosage: CITRATE FREE
     Route: 058
  3. MODERNA COVID-19 VACCINE [Concomitant]
     Active Substance: ELASOMERAN
     Indication: COVID-19 immunisation
     Dosage: TIME INTERVAL: 1 TOTAL: 1 IN ONCE
     Route: 030

REACTIONS (12)
  - Tympanic membrane perforation [Unknown]
  - Weight decreased [Recovered/Resolved]
  - Conjunctivitis [Recovered/Resolved]
  - Ear infection [Unknown]
  - Sinusitis [Recovering/Resolving]
  - COVID-19 [Unknown]
  - Abscess [Unknown]
  - Pain [Unknown]
  - Weight decreased [Not Recovered/Not Resolved]
  - Stress [Unknown]
  - Dyspnoea [Unknown]
  - Mobility decreased [Unknown]

NARRATIVE: CASE EVENT DATE: 20220901
